FAERS Safety Report 5975079-6 (Version None)
Quarter: 2008Q4

REPORT INFORMATION
  Report Type: 
  Country: None (occurrence: None)
  Receive Date: 20081202
  Receipt Date: 20081128
  Transmission Date: 20090506
  Serious: Yes (Other)
  Sender: FDA-Public Use
  Company Number: ES-BRISTOL-MYERS SQUIBB COMPANY-14357008

PATIENT
  Age: 65 Year
  Sex: Female

DRUGS (1)
  1. SPRYCEL [Suspect]
     Indication: CHRONIC MYELOID LEUKAEMIA
     Dosage: SPRYCEL 70 MG 56 COATED TABLETS
     Route: 048
     Dates: start: 20070426

REACTIONS (4)
  - CYTOMEGALOVIRUS INFECTION [None]
  - DIARRHOEA [None]
  - IMMUNOSUPPRESSION [None]
  - LYMPHOCYTOSIS [None]
